FAERS Safety Report 17902777 (Version 2)
Quarter: 2020Q2

REPORT INFORMATION
  Report Type: Spontaneous
  Country: NL (occurrence: NL)
  Receive Date: 20200616
  Receipt Date: 20200624
  Transmission Date: 20200714
  Serious: Yes (Other)
  Sender: FDA-Public Use
  Company Number: NL-PFIZER INC-2020222856

PATIENT
  Age: 57 Year
  Sex: Male

DRUGS (9)
  1. AMPHOTERICIN-B [Suspect]
     Active Substance: AMPHOTERICIN B
     Indication: ASPERGILLUS INFECTION
  2. IBRUTINIB [Concomitant]
     Active Substance: IBRUTINIB
     Dosage: 420 MG, 1X/DAY
  3. VORICONAZOLE. [Suspect]
     Active Substance: VORICONAZOLE
     Indication: ACUTE RESPIRATORY DISTRESS SYNDROME
     Dosage: UNK
  4. CEFTRIAXONE. [Suspect]
     Active Substance: CEFTRIAXONE
     Indication: PNEUMONIA
     Dosage: UNK
  5. METHYLPREDNISOLONE. [Concomitant]
     Active Substance: METHYLPREDNISOLONE
     Dosage: UNK
  6. CIPROFLOXACIN. [Suspect]
     Active Substance: CIPROFLOXACIN
     Indication: PNEUMONIA
     Dosage: UNK
  7. VORICONAZOLE. [Suspect]
     Active Substance: VORICONAZOLE
     Indication: ASPERGILLUS INFECTION
  8. AMPHOTERICIN-B [Suspect]
     Active Substance: AMPHOTERICIN B
     Indication: ACUTE RESPIRATORY DISTRESS SYNDROME
     Dosage: UNK
  9. IMMUNOGLOBULINS NOS [Concomitant]
     Active Substance: IMMUNE GLOBULIN NOS
     Dosage: UNK

REACTIONS (5)
  - Lung consolidation [Unknown]
  - Bronchiectasis [Unknown]
  - Asthenia [Unknown]
  - Hypogammaglobulinaemia [Unknown]
  - Acute respiratory distress syndrome [Unknown]
